FAERS Safety Report 14125536 (Version 1)
Quarter: 2017Q4

REPORT INFORMATION
  Report Type: Spontaneous
  Country: US (occurrence: None)
  Receive Date: 20171025
  Receipt Date: 20171025
  Transmission Date: 20180321
  Serious: Yes (Hospitalization)
  Sender: FDA-Public Use
  Company Number: None

PATIENT
  Age: 34 Year
  Sex: Male

DRUGS (7)
  1. LORTAB [Suspect]
     Active Substance: ACETAMINOPHEN\HYDROCODONE BITARTRATE
     Indication: RHABDOMYOLYSIS
  2. COCAINE [Suspect]
     Active Substance: COCAINE
     Indication: DRUG ABUSE
     Dosage: DATES OF USE - PRIOR TO ADMIT 8/17/17
  3. TYLENOL [Concomitant]
     Active Substance: ACETAMINOPHEN
  4. ALCOHOL. [Suspect]
     Active Substance: ALCOHOL
  5. CIGARETTES [Suspect]
     Active Substance: NICOTINE
     Indication: FOOT FRACTURE
  6. NAPROXEN. [Concomitant]
     Active Substance: NAPROXEN
  7. IBUPROFEN. [Concomitant]
     Active Substance: IBUPROFEN

REACTIONS (6)
  - Agitation [None]
  - Mental status changes [None]
  - Hallucination [None]
  - Foot fracture [None]
  - Renal injury [None]
  - Rhabdomyolysis [None]

NARRATIVE: CASE EVENT DATE: 20170817
